FAERS Safety Report 20690758 (Version 1)
Quarter: 2022Q2

REPORT INFORMATION
  Report Type: Spontaneous
  Country: US (occurrence: US)
  Receive Date: 20220408
  Receipt Date: 20220408
  Transmission Date: 20220721
  Serious: No
  Sender: FDA-Public Use
  Company Number: US-SA-SAC20220407000096

PATIENT
  Sex: Female

DRUGS (6)
  1. DUPIXENT [Suspect]
     Active Substance: DUPILUMAB
     Indication: Dermatitis atopic
     Dosage: 300 MG, QOW
     Route: 058
  2. LOSARTAN POTASSIUM [Concomitant]
     Active Substance: LOSARTAN POTASSIUM
  3. ATORVASTATIN [Concomitant]
     Active Substance: ATORVASTATIN
  4. DETROL LA [Concomitant]
     Active Substance: TOLTERODINE TARTRATE
  5. OMEPRAZOLE [Concomitant]
     Active Substance: OMEPRAZOLE
  6. SYNTHROID [Concomitant]
     Active Substance: LEVOTHYROXINE SODIUM

REACTIONS (2)
  - Rebound atopic dermatitis [Recovered/Resolved]
  - Product dose omission issue [Unknown]
